FAERS Safety Report 5071681-7 (Version None)
Quarter: 2006Q3

REPORT INFORMATION
  Report Type: 
  Country: None (occurrence: None)
  Receive Date: 20060801
  Receipt Date: 20060725
  Transmission Date: 20061208
  Serious: Yes (Other)
  Sender: FDA-Public Use
  Company Number: GXKR2006GB04280

PATIENT
  Age: 77 Year
  Sex: Female

DRUGS (5)
  1. CO-AMOXICLAV (NGX) (AMOXICILLIN, CLAVULANATE) [Suspect]
     Indication: CYSTITIS
     Dosage: ORAL
     Route: 048
     Dates: start: 20060620, end: 20060622
  2. ASPIRIN [Concomitant]
  3. ATENOLOL [Concomitant]
  4. ACETAMINOPHEN [Concomitant]
  5. SIMVASTATIN [Concomitant]

REACTIONS (4)
  - LIP ULCERATION [None]
  - NODULE [None]
  - ORAL MUCOSAL DISORDER [None]
  - VASCULITIS [None]
